FAERS Safety Report 4527746-9 (Version None)
Quarter: 2004Q4

REPORT INFORMATION
  Report Type: 
  Country: None (occurrence: None)
  Receive Date: 20041123
  Receipt Date: 20031007
  Transmission Date: 20050328
  Serious: Yes (Hospitalization)
  Sender: FDA-Public Use
  Company Number: 2003033256

PATIENT
  Sex: Female

DRUGS (5)
  1. LIPITOR [Suspect]
     Indication: ILL-DEFINED DISORDER
     Dosage: DAILY
     Dates: start: 20020101, end: 20020101
  2. ASPIRIN [Concomitant]
  3. METOPROLOL SUCCINATE [Concomitant]
  4. RAMIPRIL [Concomitant]
  5. DILTIAZEM HYDROCHLORIDE [Concomitant]

REACTIONS (1)
  - NAUSEA [None]
